FAERS Safety Report 6671899-3 (Version None)
Quarter: 2010Q2

REPORT INFORMATION
  Report Type: 
  Country: None (occurrence: None)
  Receive Date: 20100407
  Receipt Date: 20100329
  Transmission Date: 20101027
  Serious: Yes (Other)
  Sender: FDA-Public Use
  Company Number: GB-PFIZER INC-2010039476

PATIENT
  Age: 45 Year
  Sex: Male

DRUGS (2)
  1. LIPITOR [Suspect]
     Dosage: 10 MG, 1X/DAY
  2. SIMVASTATIN [Suspect]

REACTIONS (5)
  - ARTHRALGIA [None]
  - CONSTIPATION [None]
  - DISTURBANCE IN ATTENTION [None]
  - NAUSEA [None]
  - WEIGHT INCREASED [None]
